FAERS Safety Report 10084183 (Version 1)
Quarter: 2014Q2

REPORT INFORMATION
  Report Type: Spontaneous
  Country: TR (occurrence: TR)
  Receive Date: 20140417
  Receipt Date: 20140417
  Transmission Date: 20141212
  Serious: Yes (Death, Hospitalization)
  Sender: FDA-Public Use
  Company Number: TR-MILLENNIUM PHARMACEUTICALS, INC.-2014TUS002864

PATIENT
  Sex: 0

DRUGS (1)
  1. COLCHICINE [Suspect]
     Dosage: 0.6 MG/KG

REACTIONS (6)
  - Atrioventricular block complete [Fatal]
  - Circulatory collapse [Fatal]
  - Neutropenia [Unknown]
  - Systolic dysfunction [Unknown]
  - Nausea [Unknown]
  - Vomiting [Unknown]
